FAERS Safety Report 9889843 (Version 3)
Quarter: 2014Q1

REPORT INFORMATION
  Report Type: Spontaneous
  Country: US (occurrence: US)
  Receive Date: 20140212
  Receipt Date: 20140227
  Transmission Date: 20141002
  Serious: Yes (Other)
  Sender: FDA-Public Use
  Company Number: US-AMGEN-USASP2012044381

PATIENT
  Age: 26 Year
  Sex: Female
  Weight: 74.83 kg

DRUGS (1)
  1. ENBREL [Suspect]
     Indication: RHEUMATOID ARTHRITIS
     Dosage: 50 MG, QWK
     Route: 058
     Dates: start: 201201

REACTIONS (2)
  - Caesarean section [Recovered/Resolved]
  - Cephalo-pelvic disproportion [Unknown]
